FAERS Safety Report 21698585 (Version 1)
Quarter: 2022Q4

REPORT INFORMATION
  Report Type: Spontaneous
  Country: FR (occurrence: FR)
  Receive Date: 20221208
  Receipt Date: 20221208
  Transmission Date: 20230113
  Serious: Yes (Other)
  Sender: FDA-Public Use
  Company Number: None

PATIENT
  Age: 40 Year
  Sex: Female

DRUGS (3)
  1. SYNAREL [Suspect]
     Active Substance: NAFARELIN ACETATE
     Indication: Assisted fertilisation
     Dosage: UNK
     Route: 055
     Dates: start: 2021
  2. FOLLITROPIN\LUTROPIN ALFA [Suspect]
     Active Substance: FOLLITROPIN\LUTROPIN ALFA
     Indication: In vitro fertilisation
     Route: 058
     Dates: start: 202008
  3. MENOPUR [Suspect]
     Active Substance: FOLLITROPIN\LUTEINIZING HORMONE
     Indication: In vitro fertilisation
     Dosage: 375 IU
     Route: 042
     Dates: start: 202111

REACTIONS (1)
  - Granulomatous liver disease [Not Recovered/Not Resolved]
